FAERS Safety Report 5901445-0 (Version None)
Quarter: 2008Q3

REPORT INFORMATION
  Report Type: 
  Country: None (occurrence: None)
  Receive Date: 20080929
  Receipt Date: 20080728
  Transmission Date: 20090109
  Serious: No
  Sender: FDA-Public Use
  Company Number: US-BAYER-200829943NA

PATIENT
  Sex: Female

DRUGS (1)
  1. MIRENA [Suspect]
     Indication: DRUG USE FOR UNKNOWN INDICATION
     Route: 015
     Dates: start: 20080609

REACTIONS (7)
  - ABDOMINAL PAIN [None]
  - ALOPECIA [None]
  - BACK PAIN [None]
  - GENITAL HAEMORRHAGE [None]
  - MENSTRUATION DELAYED [None]
  - PROCEDURAL PAIN [None]
  - STRESS [None]
